FAERS Safety Report 23680216 (Version 2)
Quarter: 2024Q2

REPORT INFORMATION
  Report Type: Spontaneous
  Country: BR (occurrence: BR)
  Receive Date: 20240327
  Receipt Date: 20240613
  Transmission Date: 20240715
  Serious: Yes (Other)
  Sender: FDA-Public Use
  Company Number: BR-BoehringerIngelheim-2024-BI-016944

PATIENT
  Age: 63 Year
  Sex: Female
  Weight: 64 kg

DRUGS (2)
  1. MICARDIS HCT [Suspect]
     Active Substance: HYDROCHLOROTHIAZIDE\TELMISARTAN
     Indication: Hypertension
     Dosage: FORM STRENGHT:?40MG+12,5MG ?1 TABLET A DAY, ORALLY
     Route: 048
  2. MICARDIS HCT [Suspect]
     Active Substance: HYDROCHLOROTHIAZIDE\TELMISARTAN
     Dosage: FORM STRENGTH: ?80MG + 12,5MG ?1 TABLET A DAY, AFTER BREAKFAST, ORALLY
     Route: 048

REACTIONS (6)
  - Deafness [Not Recovered/Not Resolved]
  - COVID-19 [Recovered/Resolved]
  - Hypoacusis [Not Recovered/Not Resolved]
  - Arrhythmia [Recovered/Resolved]
  - Body height decreased [Not Recovered/Not Resolved]
  - Bone loss [Not Recovered/Not Resolved]

NARRATIVE: CASE EVENT DATE: 20210201
